FAERS Safety Report 9580544 (Version 1)
Quarter: 2013Q3

REPORT INFORMATION
  Report Type: Spontaneous
  Country: US (occurrence: None)
  Receive Date: 20130916
  Receipt Date: 20130916
  Transmission Date: 20140515
  Serious: Yes (Other)
  Sender: FDA-Public Use
  Company Number: JPI-P-023213

PATIENT
  Age: 31 Year
  Sex: Female

DRUGS (6)
  1. XYREM [Suspect]
     Indication: CATAPLEXY
     Route: 048
     Dates: start: 20110520
  2. ACETAMINOPHEN [Suspect]
     Indication: PRODUCT USED FOR UNKNOWN INDICATION
  3. LISDEXAMFETAMINE DIMESYLATE [Concomitant]
  4. VENLAFAXINE HYDROCHLORIDE [Concomitant]
  5. ACETAMINOPHEN, BUTALBITAL, CAFFEINE [Concomitant]
  6. ASA [Concomitant]

REACTIONS (3)
  - Weight decreased [None]
  - Alanine aminotransferase increased [None]
  - Aspartate aminotransferase increased [None]
